FAERS Safety Report 10412247 (Version 4)
Quarter: 2014Q4

REPORT INFORMATION
  Report Type: Report from Study
  Country: JP (occurrence: JP)
  Receive Date: 20140827
  Receipt Date: 20141119
  Transmission Date: 20150528
  Serious: Yes (Death, Other)
  Sender: FDA-Public Use
  Company Number: JP-BAYER-2014-118253

PATIENT
  Age: 76 Year
  Sex: Female
  Weight: 42 kg

DRUGS (14)
  1. MYSER [Concomitant]
     Active Substance: DIFLUPREDNATE
     Indication: DRUG TOXICITY PROPHYLAXIS
     Dosage: UNK, QS
     Route: 061
     Dates: end: 20140805
  2. MICARDIS [Concomitant]
     Active Substance: TELMISARTAN
     Dosage: DAILY DOSE 40 MG
     Route: 048
  3. LUNESTA [Concomitant]
     Active Substance: ESZOPICLONE
     Indication: RECTAL CANCER
     Dosage: DAILY DOSE 1 MG
     Route: 048
  4. SIMVASTATIN. [Concomitant]
     Active Substance: SIMVASTATIN
     Route: 048
  5. JUZENTAIHOTO [Concomitant]
     Indication: RECTAL CANCER
     Dosage: DAILY DOSE 2.5 G
     Route: 048
  6. LAFUTIDINE [Concomitant]
     Active Substance: LAFUTIDINE
     Indication: RECTAL CANCER
     Dosage: DAILY DOSE 20 MG
     Route: 048
  7. UREPEARL [Concomitant]
     Active Substance: UREA
     Indication: DRUG TOXICITY PROPHYLAXIS
     Dosage: UNK, QS
     Route: 061
     Dates: end: 20140805
  8. MAGMITT [Concomitant]
     Active Substance: MAGNESIUM OXIDE
     Indication: RECTAL CANCER
     Dosage: DAILY DOSE 330 MG
     Route: 048
  9. LAC-B [Concomitant]
     Active Substance: BIFIDOBACTERIUM SPP.
     Indication: RECTAL CANCER
     Dosage: DAILY DOSE 1 G
     Route: 048
  10. CELECOXIB. [Concomitant]
     Active Substance: CELECOXIB
     Route: 048
  11. STIVARGA [Suspect]
     Active Substance: REGORAFENIB
     Indication: RECTAL CANCER
     Dosage: QD
     Route: 048
     Dates: start: 20140722, end: 20140803
  12. AMLODIPINE [Concomitant]
     Active Substance: AMLODIPINE BESYLATE
     Route: 048
  13. PATELL [Concomitant]
     Indication: PROPHYLAXIS
     Dosage: UNK
     Route: 062
  14. EDIROL [Concomitant]
     Active Substance: ELDECALCITOL
     Indication: OSTEOPOROSIS PROPHYLAXIS
     Dosage: DAILY DOSE .75 ?G
     Route: 048

REACTIONS (7)
  - Platelet count decreased [None]
  - Disseminated intravascular coagulation [Fatal]
  - Blood pressure decreased [None]
  - Atrial fibrillation [None]
  - Multi-organ failure [Fatal]
  - Liver disorder [Fatal]
  - Melaena [None]

NARRATIVE: CASE EVENT DATE: 20140728
